FAERS Safety Report 10892559 (Version 3)
Quarter: 2015Q2

REPORT INFORMATION
  Report Type: Report from Study
  Country: US (occurrence: US)
  Receive Date: 20150306
  Receipt Date: 20150428
  Transmission Date: 20150821
  Serious: Yes (Hospitalization)
  Sender: FDA-Public Use
  Company Number: PHEH2015US004359

PATIENT
  Sex: Female

DRUGS (1)
  1. CLOZARIL [Suspect]
     Active Substance: CLOZAPINE
     Indication: PRODUCT USED FOR UNKNOWN INDICATION
     Route: 065

REACTIONS (10)
  - Eating disorder [Unknown]
  - Purging [Unknown]
  - Anxiety [Unknown]
  - Self-injurious ideation [Unknown]
  - Bipolar disorder [Unknown]
  - Apathy [Unknown]
  - Feeling abnormal [Unknown]
  - Depression [Unknown]
  - Impulse-control disorder [Unknown]
  - Paranoia [Unknown]
